FAERS Safety Report 12785155 (Version 1)
Quarter: 2016Q3

REPORT INFORMATION
  Report Type: Report from Study
  Country: CO (occurrence: CO)
  Receive Date: 20160927
  Receipt Date: 20160927
  Transmission Date: 20161109
  Serious: Yes (Other)
  Sender: FDA-Public Use
  Company Number: CO-ABBVIE-16K-036-1739387-00

PATIENT
  Age: 42 Year
  Sex: Male
  Weight: 95 kg

DRUGS (1)
  1. HUMIRA [Suspect]
     Active Substance: ADALIMUMAB
     Indication: ANKYLOSING SPONDYLITIS
     Route: 058
     Dates: start: 20131209, end: 20160902

REACTIONS (1)
  - Inguinal hernia [Recovering/Resolving]

NARRATIVE: CASE EVENT DATE: 201608
